FAERS Safety Report 10008600 (Version 1)
Quarter: 2014Q1

REPORT INFORMATION
  Report Type: Spontaneous
  Country: US (occurrence: US)
  Receive Date: 20140312
  Receipt Date: 20140312
  Transmission Date: 20141002
  Serious: No
  Sender: FDA-Public Use
  Company Number: US-INCYTE CORPORATION-2012IN000145

PATIENT
  Age: 76 Year
  Sex: Male

DRUGS (7)
  1. JAKAFI [Suspect]
     Indication: MYELOFIBROSIS
     Dosage: 10 MG, QD
  2. SIMVASTATIN [Concomitant]
     Dosage: 40 MG, QD
  3. PLAVIX [Concomitant]
     Dosage: 75 MG, QD
  4. VITAMIN E [Concomitant]
  5. VITAMIN B12 [Concomitant]
  6. ASPIRIN [Concomitant]
     Dosage: 325 MG, QD
  7. TRAMADOL [Concomitant]
     Dosage: 100 MG, QD

REACTIONS (2)
  - Dyspnoea [None]
  - Haemoglobin decreased [None]
